FAERS Safety Report 12823389 (Version 2)
Quarter: 2016Q4

REPORT INFORMATION
  Report Type: Spontaneous
  Country: US (occurrence: US)
  Receive Date: 20161006
  Receipt Date: 20161018
  Transmission Date: 20170207
  Serious: Yes (Hospitalization)
  Sender: FDA-Public Use
  Company Number: US-ELI_LILLY_AND_COMPANY-US201610001208

PATIENT
  Age: 75 Year
  Sex: Male
  Weight: 76.64 kg

DRUGS (11)
  1. AMBRISENTAN [Suspect]
     Active Substance: AMBRISENTAN
     Dosage: 5 MG, QD
     Route: 048
     Dates: start: 20160921
  2. SYNTHROID [Concomitant]
     Active Substance: LEVOTHYROXINE SODIUM
  3. OMEPRAZOLE. [Concomitant]
     Active Substance: OMEPRAZOLE
  4. METOPROLOL. [Concomitant]
     Active Substance: METOPROLOL
  5. ADCIRCA [Suspect]
     Active Substance: TADALAFIL
     Indication: PRODUCT USED FOR UNKNOWN INDICATION
     Dosage: UNK, UNKNOWN
     Route: 065
  6. UPTRAVI [Concomitant]
     Active Substance: SELEXIPAG
     Dosage: 200 UG, BID
     Route: 065
  7. COUMADIN [Concomitant]
     Active Substance: WARFARIN SODIUM
  8. SIMVASTATIN. [Concomitant]
     Active Substance: SIMVASTATIN
  9. AMBRISENTAN [Suspect]
     Active Substance: AMBRISENTAN
     Indication: PULMONARY HYPERTENSION
     Dosage: 10 MG, QD
     Route: 048
     Dates: start: 20160620, end: 20160831
  10. LASIX [Concomitant]
     Active Substance: FUROSEMIDE
  11. IMODIUM [Concomitant]
     Active Substance: LOPERAMIDE HYDROCHLORIDE

REACTIONS (4)
  - Balance disorder [Recovered/Resolved]
  - Dysarthria [Recovered/Resolved]
  - Cerebrovascular accident [Recovered/Resolved]
  - International normalised ratio increased [Unknown]

NARRATIVE: CASE EVENT DATE: 20160830
